FAERS Safety Report 9255421 (Version 1)
Quarter: 2013Q1

REPORT INFORMATION
  Report Type: Spontaneous
  Country: US (occurrence: None)
  Receive Date: 20121212
  Receipt Date: 20121212
  Transmission Date: 20140127
  Serious: No
  Sender: FDA-Public Use
  Company Number: 1209USA006888

PATIENT
  Age: 27 Year
  Sex: Female

DRUGS (2)
  1. PEGINTRON(PEGINTERFERON ALFA-2B) POWDER FOR INJECTION [Suspect]
     Indication: HEPATITIS C
     Route: 058
     Dates: start: 20120516
  2. VICTRELIS (BOCEPREVIR) CAPSULE [Suspect]

REACTIONS (2)
  - Haemoglobin decreased [None]
  - Platelet count decreased [None]
